FAERS Safety Report 4335393-7 (Version None)
Quarter: 2004Q2

REPORT INFORMATION
  Report Type: 
  Country: None (occurrence: None)
  Receive Date: 20040408
  Receipt Date: 20040408
  Transmission Date: 20050107
  Serious: Yes (Death, Hospitalization)
  Sender: FDA-Public Use
  Company Number: None

PATIENT
  Sex: Male
  Weight: 67.5 kg

DRUGS (10)
  1. CISPLATIN [Suspect]
     Indication: LUNG CANCER METASTATIC
     Dosage: 80 MG/M2 IV DAY 1 OF CYCLE Q 21 DAYS
     Route: 042
     Dates: start: 20040127
  2. CISPLATIN [Suspect]
     Indication: LUNG CANCER METASTATIC
     Dosage: 80 MG/M2 IV DAY 1 OF CYCLE Q 21 DAYS
     Route: 042
     Dates: start: 20040219
  3. CISPLATIN [Suspect]
     Indication: LUNG CANCER METASTATIC
     Dosage: 80 MG/M2 IV DAY 1 OF CYCLE Q 21 DAYS
     Route: 042
     Dates: start: 20040317
  4. ETOPOSIDE [Suspect]
     Indication: LUNG CANCER METASTATIC
     Dosage: 100 MG /M2 IV DAY 1-2-3 OF CYCLE Q 21 DAYS (REDUCED TO 85MG/M2 CYCLE 2)
     Route: 042
     Dates: start: 20040127, end: 20040129
  5. ETOPOSIDE [Suspect]
     Indication: LUNG CANCER METASTATIC
     Dosage: 100 MG /M2 IV DAY 1-2-3 OF CYCLE Q 21 DAYS (REDUCED TO 85MG/M2 CYCLE 2)
     Route: 042
     Dates: start: 20040219, end: 20040221
  6. ETOPOSIDE [Suspect]
     Indication: LUNG CANCER METASTATIC
     Dosage: 100 MG /M2 IV DAY 1-2-3 OF CYCLE Q 21 DAYS (REDUCED TO 85MG/M2 CYCLE 2)
     Route: 042
     Dates: start: 20040317, end: 20040318
  7. ROXANOL [Concomitant]
  8. ORAMORPH SR [Concomitant]
  9. ATIVAN [Concomitant]
  10. FLOMAX [Concomitant]

REACTIONS (1)
  - FEBRILE NEUTROPENIA [None]
